FAERS Safety Report 6556768-1 (Version None)
Quarter: 2010Q1

REPORT INFORMATION
  Report Type: 
  Country: None (occurrence: None)
  Receive Date: 20100128
  Receipt Date: 20100125
  Transmission Date: 20100710
  Serious: Yes (Death, Hospitalization)
  Sender: FDA-Public Use
  Company Number: GB-JNJFOC-20100110158

PATIENT
  Age: 53 Year
  Sex: Male

DRUGS (11)
  1. LEVOFLOXACIN [Suspect]
     Indication: INFECTION
     Route: 065
  2. GENTAMICIN SULFATE [Suspect]
     Indication: INFECTION
     Route: 065
  3. PARACETAMOL [Suspect]
     Route: 065
  4. PARACETAMOL [Suspect]
     Indication: ANALGESIC THERAPY
     Route: 065
  5. AMOXICILLIN AND CLAVULANATE POTASSIUM [Suspect]
     Indication: INFECTION
     Route: 065
  6. METRONIDAZOLE [Suspect]
     Indication: INFECTION
     Route: 065
  7. VANCOMYCIN [Suspect]
     Indication: INFECTION
     Route: 065
  8. TPN [Suspect]
     Indication: DRUG USE FOR UNKNOWN INDICATION
     Route: 065
  9. DICLOFENAC [Concomitant]
     Route: 065
  10. METOCLOPRAMIDE [Concomitant]
     Route: 065
  11. OMEPRAZOLE [Concomitant]
     Route: 065

REACTIONS (3)
  - DISORIENTATION [None]
  - METABOLIC ACIDOSIS [None]
  - MYOCARDIAL INFARCTION [None]
